FAERS Safety Report 5372249-5 (Version None)
Quarter: 2007Q2

REPORT INFORMATION
  Report Type: 
  Country: None (occurrence: None)
  Receive Date: 20070615
  Receipt Date: 20070131
  Transmission Date: 20071010
  Serious: Yes (Hospitalization, Other)
  Sender: FDA-Public Use
  Company Number: 200619838US

PATIENT
  Age: 69 Year
  Sex: Female
  Weight: 79.5 kg

DRUGS (12)
  1. LANTUS [Suspect]
     Indication: DIABETES MELLITUS INSULIN-DEPENDENT
     Dosage: 14 U QPM
     Dates: start: 19950101
  2. HUMALOG [Concomitant]
  3. AVANDIA [Concomitant]
  4. SYNTHROID [Concomitant]
  5. ATORVASTATIN CALCIUM              (LIPITOR) [Concomitant]
  6. CALCIUM CHLORIDE [Concomitant]
  7. ERGOCALCIFEROL, ASCORBIC ACID, FOLIC ACID, THIAMINE HYDROCHLORIDE, RET [Concomitant]
  8. POTASSIUM CHLORIDE         (K-TAB) [Concomitant]
  9. LASIX [Concomitant]
  10. ASPIRIN [Concomitant]
  11. TOCOPHERYL ACETATE        (VITAMIN E) [Concomitant]
  12. NAPROXEN SODIUM           (ALEVE) [Concomitant]

REACTIONS (8)
  - ASTHENIA [None]
  - BLOOD GLUCOSE INCREASED [None]
  - DRUG INEFFECTIVE [None]
  - HYPOGLYCAEMIA [None]
  - HYPOGLYCAEMIA UNAWARENESS [None]
  - LOSS OF CONSCIOUSNESS [None]
  - MEDICATION ERROR [None]
  - MOBILITY DECREASED [None]
